FAERS Safety Report 7949261-2 (Version None)
Quarter: 2011Q4

REPORT INFORMATION
  Report Type: 
  Country: None (occurrence: None)
  Receive Date: 20111130
  Receipt Date: 20111116
  Transmission Date: 20120403
  Serious: Yes (Death, Hospitalization, Other)
  Sender: FDA-Public Use
  Company Number: CA-ROCHE-791509

PATIENT
  Sex: Male
  Weight: 79.8 kg

DRUGS (9)
  1. MELOXICAM [Concomitant]
  2. LEUCOVORIN CALCIUM [Concomitant]
  3. ACTEMRA [Suspect]
     Route: 042
  4. OMEPRAZOLE [Concomitant]
  5. FOLIC ACID [Concomitant]
  6. HYDROMORPHONE HCL [Concomitant]
  7. ACTEMRA [Suspect]
     Indication: RHEUMATOID ARTHRITIS
     Route: 042
     Dates: start: 20101110, end: 20110705
  8. ACTEMRA [Suspect]
     Route: 042
     Dates: start: 20110510, end: 20110705
  9. METHOTREXATE [Concomitant]

REACTIONS (5)
  - DELUSION [None]
  - ARRHYTHMIA [None]
  - ABDOMINAL PAIN [None]
  - DEHYDRATION [None]
  - COMPLETED SUICIDE [None]
